FAERS Safety Report 4637283-9 (Version None)
Quarter: 2005Q2

REPORT INFORMATION
  Report Type: 
  Country: None (occurrence: None)
  Receive Date: 20050328
  Receipt Date: 20041130
  Transmission Date: 20051028
  Serious: No
  Sender: FDA-Public Use
  Company Number: USA041284902

PATIENT
  Age: 16 Year
  Sex: Male

DRUGS (6)
  1. STRATTERA [Suspect]
     Dosage: 40 MG
     Dates: start: 20030101
  2. WELLBUTRIN [Concomitant]
  3. SYNTHROID [Concomitant]
  4. GEODON [Concomitant]
  5. LAMICTAL [Concomitant]
  6. TRILEPTAL [Concomitant]

REACTIONS (1)
  - DRUG SCREEN POSITIVE [None]
